FAERS Safety Report 15734126 (Version 2)
Quarter: 2020Q2

REPORT INFORMATION
  Report Type: Spontaneous
  Country: FR (occurrence: FR)
  Receive Date: 20181218
  Receipt Date: 20200429
  Transmission Date: 20200713
  Serious: Yes (Other)
  Sender: FDA-Public Use
  Company Number: FR-BRISTOL-MYERS SQUIBB COMPANY-BMS-2018-116891

PATIENT
  Age: 79 Year
  Sex: Female

DRUGS (2)
  1. KARDEGIC [Concomitant]
     Active Substance: ASPIRIN DL-LYSINE
     Indication: ARTERIAL THROMBOSIS
     Dosage: UNK
     Route: 065
     Dates: start: 2015, end: 2016
  2. ELIQUIS [Suspect]
     Active Substance: APIXABAN
     Indication: ARTERIAL THROMBOSIS
     Dosage: UNAVAILABLE
     Route: 065
     Dates: start: 2015, end: 2016

REACTIONS (3)
  - Ischaemic stroke [Recovering/Resolving]
  - Intentional product use issue [Unknown]
  - Anal fissure [Unknown]

NARRATIVE: CASE EVENT DATE: 201811
